FAERS Safety Report 7596789-3 (Version None)
Quarter: 2011Q3

REPORT INFORMATION
  Report Type: 
  Country: None (occurrence: None)
  Receive Date: 20110708
  Receipt Date: 20110706
  Transmission Date: 20111222
  Serious: Yes (Disabling)
  Sender: FDA-Public Use
  Company Number: GB-EISAI INC-E2020-09407-SPO-GB

PATIENT
  Age: 87 Year
  Sex: Male

DRUGS (2)
  1. ESCITALOPRAM [Suspect]
     Route: 048
  2. ARICEPT [Suspect]
     Route: 048

REACTIONS (3)
  - TARDIVE DYSKINESIA [None]
  - VIITH NERVE PARALYSIS [None]
  - MYOCLONUS [None]
